FAERS Safety Report 6313398-4 (Version None)
Quarter: 2009Q3

REPORT INFORMATION
  Report Type: 
  Country: None (occurrence: None)
  Receive Date: 20090818
  Receipt Date: 20090806
  Transmission Date: 20100115
  Serious: Yes (Disabling)
  Sender: FDA-Public Use
  Company Number: US-PFIZER INC-2009216769

PATIENT
  Sex: Male
  Weight: 68.027 kg

DRUGS (14)
  1. MARAVIROC [Suspect]
     Indication: HIV INFECTION
     Dosage: 150 MG, 2X/DAY
     Route: 048
     Dates: start: 20070906
  2. ATENOLOL [Concomitant]
     Dosage: UNK
     Route: 048
     Dates: start: 20001113
  3. WELLBUTRIN [Concomitant]
     Dosage: UNK
     Route: 048
     Dates: start: 20011212
  4. LOMOTIL [Concomitant]
     Dosage: UNK
     Route: 048
     Dates: start: 19980814
  5. PAROL [Concomitant]
     Dosage: UNK
     Route: 048
     Dates: start: 19990624
  6. PRAVASTATIN [Concomitant]
     Dosage: UNK
     Route: 048
     Dates: start: 20081109
  7. AMBIEN [Concomitant]
     Dosage: UNK
     Route: 048
     Dates: start: 20080731
  8. LISINOPRIL [Concomitant]
     Dosage: UNK
     Route: 048
     Dates: start: 20090330
  9. ATIVAN [Concomitant]
     Dosage: UNK
     Route: 048
     Dates: start: 20090403
  10. ACETYLSALICYLIC ACID [Concomitant]
     Dosage: UNK
     Route: 048
     Dates: start: 20071009
  11. DARUNAVIR [Concomitant]
     Dosage: UNK
     Route: 048
     Dates: start: 20060728
  12. RITONAVIR [Concomitant]
     Dosage: UNK
     Route: 048
     Dates: start: 20060728
  13. TRUVADA [Concomitant]
     Dosage: UNK
     Route: 048
     Dates: start: 20060728
  14. RALTEGRAVIR [Concomitant]
     Dosage: UNK
     Route: 048
     Dates: start: 20060728

REACTIONS (1)
  - COLON CANCER [None]
